FAERS Safety Report 7242202-5 (Version None)
Quarter: 2011Q1

REPORT INFORMATION
  Report Type: 
  Country: None (occurrence: None)
  Receive Date: 20110124
  Receipt Date: 20110114
  Transmission Date: 20110831
  Serious: Yes (Hospitalization)
  Sender: FDA-Public Use
  Company Number: NL-MEDIMMUNE-MEDI-0012117

PATIENT
  Sex: Female
  Weight: 8.75 kg

DRUGS (4)
  1. BUDESONIDE [Concomitant]
  2. IPRATROPIUM BROMIDE [Concomitant]
  3. SYNAGIS [Suspect]
     Route: 030
     Dates: start: 20101223, end: 20101223
  4. SYNAGIS [Suspect]
     Route: 030
     Dates: start: 20101026, end: 20101123

REACTIONS (4)
  - OXYGEN SATURATION DECREASED [None]
  - RESPIRATORY SYNCYTIAL VIRUS INFECTION [None]
  - COUGH [None]
  - DYSPNOEA [None]
